FAERS Safety Report 6674599-9 (Version None)
Quarter: 2010Q2

REPORT INFORMATION
  Report Type: 
  Country: None (occurrence: None)
  Receive Date: 20100409
  Receipt Date: 20100401
  Transmission Date: 20101027
  Serious: Yes (Other)
  Sender: FDA-Public Use
  Company Number: FR-ROCHE-685126

PATIENT
  Sex: Male
  Weight: 53 kg

DRUGS (1)
  1. BEVACIZUMAB [Suspect]
     Route: 042
     Dates: start: 20090513, end: 20091014

REACTIONS (1)
  - PERIPHERAL ISCHAEMIA [None]
